FAERS Safety Report 9931912 (Version 4)
Quarter: 2014Q1

REPORT INFORMATION
  Report Type: Report from Study
  Country: US (occurrence: US)
  Receive Date: 20140228
  Receipt Date: 20140319
  Transmission Date: 20141002
  Serious: Yes (Hospitalization)
  Sender: FDA-Public Use
  Company Number: US-JNJFOC-20140215719

PATIENT
  Age: 11 Year
  Sex: Female
  Weight: 33.1 kg

DRUGS (4)
  1. REMICADE [Suspect]
     Indication: INFLAMMATORY BOWEL DISEASE
     Route: 042
     Dates: start: 20130111
  2. BUDESONIDE [Concomitant]
     Route: 065
  3. METRONIDAZOLE [Concomitant]
     Route: 065
  4. VANCOMYCIN [Concomitant]
     Route: 065

REACTIONS (2)
  - Inflammatory bowel disease [Recovered/Resolved]
  - Enteral feeding intolerance [Recovered/Resolved]
